FAERS Safety Report 15525216 (Version 4)
Quarter: 2018Q4

REPORT INFORMATION
  Report Type: Spontaneous
  Country: JP (occurrence: JP)
  Receive Date: 20181018
  Receipt Date: 20181024
  Transmission Date: 20190205
  Serious: Yes (Other)
  Sender: FDA-Public Use
  Company Number: PHJP2018JP017833

PATIENT
  Age: 52 Year
  Sex: Female

DRUGS (1)
  1. CICLOSPORIN [Suspect]
     Active Substance: CYCLOSPORINE
     Indication: LIVER TRANSPLANT
     Dosage: UNK
     Route: 042

REACTIONS (4)
  - Cytomegalovirus enterocolitis [Unknown]
  - Intestinal ulcer perforation [Unknown]
  - Transplant rejection [Unknown]
  - Thrombotic microangiopathy [Unknown]
